FAERS Safety Report 18015691 (Version 1)
Quarter: 2020Q3

REPORT INFORMATION
  Report Type: Spontaneous
  Country: FR (occurrence: FR)
  Receive Date: 20200713
  Receipt Date: 20200713
  Transmission Date: 20201103
  Serious: Yes (Other)
  Sender: FDA-Public Use
  Company Number: FR-009507513-2007FRA002970

PATIENT
  Age: 54 Year
  Sex: Male

DRUGS (1)
  1. PEMBROLIZUMAB. [Suspect]
     Active Substance: PEMBROLIZUMAB
     Indication: SARCOMATOID CARCINOMA OF THE LUNG
     Dosage: 200 MILLIGRAM, Q3W

REACTIONS (1)
  - Haemophagocytic lymphohistiocytosis [Unknown]
